FAERS Safety Report 25710898 (Version 4)
Quarter: 2025Q4

REPORT INFORMATION
  Report Type: Spontaneous
  Country: US (occurrence: US)
  Receive Date: 20250821
  Receipt Date: 20251111
  Transmission Date: 20260117
  Serious: Yes (Hospitalization, Other)
  Sender: SANOFI AVENTIS
  Company Number: US-SA-2025SA247725

PATIENT
  Age: 60 Year
  Sex: Female

DRUGS (2)
  1. DUPIXENT [Suspect]
     Active Substance: DUPILUMAB
     Indication: Asthma
     Dosage: 300 MG, QOW
     Route: 058
     Dates: start: 20250627
  2. DUPIXENT [Suspect]
     Active Substance: DUPILUMAB
     Indication: Emphysema

REACTIONS (9)
  - Diverticulitis [Unknown]
  - Muscle spasms [Unknown]
  - Functional gastrointestinal disorder [Unknown]
  - Diarrhoea [Unknown]
  - Condition aggravated [Unknown]
  - Product preparation error [Unknown]
  - Injection site pain [Recovered/Resolved]
  - Incorrect dose administered [Unknown]
  - Product use in unapproved indication [Unknown]

NARRATIVE: CASE EVENT DATE: 20250101
